FAERS Safety Report 14008533 (Version 3)
Quarter: 2018Q4

REPORT INFORMATION
  Report Type: Spontaneous
  Country: CN (occurrence: CN)
  Receive Date: 20170925
  Receipt Date: 20181214
  Transmission Date: 20190204
  Serious: Yes (Death, Other)
  Sender: FDA-Public Use
  Company Number: CN-PFIZER INC-2017407796

PATIENT
  Age: 58 Year
  Sex: Male

DRUGS (5)
  1. VINCRISTINE [Suspect]
     Active Substance: VINCRISTINE
     Indication: METASTATIC LYMPHOMA
     Dosage: UNK, CYCLIC, (PLANNED TO BE GIVEN EVERY 3 WEEKS, WITH SIX CYCLES IN TOTAL)
  2. PREDNISONE. [Suspect]
     Active Substance: PREDNISONE
     Indication: METASTATIC LYMPHOMA
     Dosage: UNK, CYCLIC, (PLANNED TO BE GIVEN EVERY 3 WEEKS, WITH SIX CYCLES IN TOTAL)
  3. CYCLOPHOSPHAMIDE. [Suspect]
     Active Substance: CYCLOPHOSPHAMIDE
     Indication: METASTATIC LYMPHOMA
     Dosage: UNK, CYCLIC, (PLANNED TO BE GIVEN EVERY 3 WEEKS, WITH SIX CYCLES IN TOTAL)
  4. DOXORUBICIN HCL [Suspect]
     Active Substance: DOXORUBICIN HYDROCHLORIDE
     Indication: METASTATIC LYMPHOMA
     Dosage: UNK, CYCLIC, (PLANNED TO BE GIVEN EVERY 3 WEEKS, WITH SIX CYCLES IN TOTAL)
  5. L-ASPARAGINASE [Suspect]
     Active Substance: ASPARAGINASE
     Indication: METASTATIC LYMPHOMA
     Dosage: UNK, CYCLIC, (PLANNED TO BE GIVEN EVERY 3 WEEKS, WITH SIX CYCLES IN TOTAL)

REACTIONS (7)
  - Diarrhoea [Unknown]
  - Neoplasm progression [Fatal]
  - Pyrexia [Unknown]
  - Tachypnoea [Unknown]
  - Abdominal pain [Unknown]
  - Ascites [Unknown]
  - Bone marrow failure [Unknown]
